FAERS Safety Report 13558901 (Version 3)
Quarter: 2017Q4

REPORT INFORMATION
  Report Type: Spontaneous
  Country: JP (occurrence: JP)
  Receive Date: 20170518
  Receipt Date: 20171009
  Transmission Date: 20180320
  Serious: Yes (Hospitalization)
  Sender: FDA-Public Use
  Company Number: JP-BAYER-2017-072860

PATIENT
  Age: 68 Year
  Sex: Male
  Weight: 71 kg

DRUGS (5)
  1. DENOSUMAB [Concomitant]
     Active Substance: DENOSUMAB
     Dosage: 120MG DAILY
     Route: 042
  2. XOFIGO [Suspect]
     Active Substance: RADIUM RA-223 DICHLORIDE
     Indication: PROSTATE CANCER METASTATIC
     Dosage: 55KBQ/KG, ONCE
     Route: 042
     Dates: start: 20170310, end: 20170310
  3. XOFIGO [Suspect]
     Active Substance: RADIUM RA-223 DICHLORIDE
     Indication: PROSTATE CANCER METASTATIC
     Dosage: 55KBQ/KG,, ONCE
     Route: 042
     Dates: start: 20170113, end: 20170113
  4. DEGARELIX [Concomitant]
     Active Substance: DEGARELIX
     Dosage: 80MG DAILY
     Route: 042
  5. XOFIGO [Suspect]
     Active Substance: RADIUM RA-223 DICHLORIDE
     Indication: METASTASES TO BONE
     Dosage: 55KBQ/KG,, ONCE
     Route: 042
     Dates: start: 20170210, end: 20170210

REACTIONS (4)
  - Pancytopenia [Not Recovered/Not Resolved]
  - Cerebral infarction [Recovered/Resolved]
  - Platelet count decreased [Not Recovered/Not Resolved]
  - Anaemia [Not Recovered/Not Resolved]

NARRATIVE: CASE EVENT DATE: 20170510
